FAERS Safety Report 4444616-5 (Version None)
Quarter: 2004Q3

REPORT INFORMATION
  Report Type: 
  Country: None (occurrence: None)
  Receive Date: 20040909
  Receipt Date: 20040901
  Transmission Date: 20050211
  Serious: Yes (Hospitalization)
  Sender: FDA-Public Use
  Company Number: 200413249FR

PATIENT
  Age: 80 Year
  Sex: Male

DRUGS (4)
  1. LASIX [Suspect]
     Indication: ESSENTIAL HYPERTENSION
     Route: 042
     Dates: start: 20040613, end: 20040614
  2. LOXEN [Concomitant]
     Indication: ESSENTIAL HYPERTENSION
     Route: 048
     Dates: end: 20040615
  3. APROVEL [Concomitant]
     Indication: ESSENTIAL HYPERTENSION
     Route: 048
     Dates: end: 20040615
  4. NEXIUM [Concomitant]
     Indication: OESOPHAGITIS
     Route: 048
     Dates: end: 20040615

REACTIONS (2)
  - COMA [None]
  - DEHYDRATION [None]
